FAERS Safety Report 15464409 (Version 1)
Quarter: 2018Q4

REPORT INFORMATION
  Report Type: Spontaneous
  Country: IT (occurrence: IT)
  Receive Date: 20181004
  Receipt Date: 20181004
  Transmission Date: 20190204
  Serious: Yes (Other)
  Sender: FDA-Public Use
  Company Number: IT-MYLANLABS-2018M1072344

PATIENT
  Age: 79 Year
  Sex: Male

DRUGS (1)
  1. MEMANTINE MYLAN [Suspect]
     Active Substance: MEMANTINE
     Indication: SENILE DEMENTIA
     Dosage: 20 MG, QD

REACTIONS (1)
  - Drug ineffective [Recovering/Resolving]
